FAERS Safety Report 11632017 (Version 2)
Quarter: 2015Q4

REPORT INFORMATION
  Report Type: Report from Study
  Country: BR (occurrence: BR)
  Receive Date: 20151015
  Receipt Date: 20151117
  Transmission Date: 20160304
  Serious: Yes (Other)
  Sender: FDA-Public Use
  Company Number: PHHY2015BR124404

PATIENT
  Age: 73 Year
  Sex: Female
  Weight: 58.16 kg

DRUGS (3)
  1. NEBLOCK [Concomitant]
     Active Substance: NEBIVOLOL HYDROCHLORIDE
     Indication: BLOOD CHOLESTEROL INCREASED
  2. NEBLOCK [Concomitant]
     Active Substance: NEBIVOLOL HYDROCHLORIDE
     Indication: BLOOD TRIGLYCERIDES
     Dosage: 1 DF, QD (01 TB PER DAY)
     Route: 048
  3. DIOVAN AMLO FIX [Suspect]
     Active Substance: AMLODIPINE\VALSARTAN
     Indication: HYPERTENSION
     Dosage: 1 TABLET, QD
     Route: 048

REACTIONS (4)
  - Blood triglycerides increased [Recovering/Resolving]
  - Blood cholesterol increased [Recovering/Resolving]
  - Venous occlusion [Recovering/Resolving]
  - Drug dependence [Recovering/Resolving]
